FAERS Safety Report 5605820-3 (Version None)
Quarter: 2008Q1

REPORT INFORMATION
  Report Type: 
  Country: None (occurrence: None)
  Receive Date: 20080129
  Receipt Date: 20080118
  Transmission Date: 20080703
  Serious: Yes (Hospitalization)
  Sender: FDA-Public Use
  Company Number: PHHO2008FR01381

PATIENT
  Age: 58 Year
  Sex: Female
  Weight: 42 kg

DRUGS (6)
  1. RAD001 VS PLACEBO [Suspect]
     Indication: CARCINOID TUMOUR
     Dosage: DOUBLE BLIND
     Route: 048
     Dates: start: 20070709
  2. SANDOSTATIN LAR [Suspect]
     Indication: CARCINOID TUMOUR
     Dosage: DOUBLE BLIND
     Route: 048
     Dates: start: 20070709
  3. IMODIUM [Concomitant]
  4. DIFFU K [Concomitant]
  5. ALUMINUM HYDROXIDE AND MAGNESIUM TRISILICATE [Concomitant]
  6. ULTRA LEVURA [Concomitant]

REACTIONS (2)
  - BLOOD POTASSIUM DECREASED [None]
  - MALNUTRITION [None]
